FAERS Safety Report 6423166-0 (Version None)
Quarter: 2009Q4

REPORT INFORMATION
  Report Type: 
  Country: None (occurrence: None)
  Receive Date: 20091028
  Receipt Date: 20091022
  Transmission Date: 20100525
  Serious: Yes (Hospitalization)
  Sender: FDA-Public Use
  Company Number: 2009011822

PATIENT
  Age: 85 Year

DRUGS (5)
  1. TREANDA [Suspect]
     Indication: BREAST CANCER
     Dosage: (130 MG,CYCLICAL), INTRAVENOUS
     Route: 042
     Dates: start: 20090909, end: 20091014
  2. TAXOL [Suspect]
     Dosage: (105 MG), INTRAVENOUS
     Route: 042
     Dates: start: 20090904, end: 20091014
  3. ATACAND [Concomitant]
  4. METOPROLOL (METOPROLOL) [Concomitant]
  5. STMVASTATTN (STMVASTATTN) [Concomitant]

REACTIONS (1)
  - GENERAL PHYSICAL HEALTH DETERIORATION [None]
